FAERS Safety Report 7812693 (Version 3)
Quarter: 2015Q4

REPORT INFORMATION
  Report Type: Report from Study
  Country: US (occurrence: US)
  Receive Date: 20110215
  Receipt Date: 20151203
  Transmission Date: 20160305
  Serious: Yes (Death, Life-Threatening, Hospitalization)
  Sender: FDA-Public Use
  Company Number: US-ROCHE-708591

PATIENT
  Age: 67 Year
  Sex: Male

DRUGS (7)
  1. DOCETAXEL. [Suspect]
     Active Substance: DOCETAXEL
     Indication: HEAD AND NECK CANCER
     Dosage: DAY 01, OVER 1 HOUR
     Route: 042
     Dates: start: 20100325
  2. CISPLATIN. [Suspect]
     Active Substance: CISPLATIN
     Indication: HEAD AND NECK CANCER
     Dosage: DAY 01, OVER 1-2 HOURS
     Route: 042
     Dates: start: 20100325
  3. CISPLATIN. [Suspect]
     Active Substance: CISPLATIN
     Dosage: DAY 01, OVER 1-2 HOURS
     Route: 042
     Dates: start: 20100419
  4. BEVACIZUMAB [Suspect]
     Active Substance: BEVACIZUMAB
     Indication: HEAD AND NECK CANCER
     Dosage: DAY 01, OVER 30-90 MINUTE, CYCLE: 21 DAYS
     Route: 042
  5. DOCETAXEL. [Suspect]
     Active Substance: DOCETAXEL
     Dosage: DAY 01, OVER 1 HOUR?CYCLE 2.
     Route: 042
     Dates: start: 20100419
  6. CARBOPLATIN. [Suspect]
     Active Substance: CARBOPLATIN
     Indication: HEAD AND NECK CANCER
     Dosage: CYCLE 3 SWITCHED FROM CISPLATIN
     Route: 042
     Dates: start: 20100517
  7. BEVACIZUMAB [Suspect]
     Active Substance: BEVACIZUMAB
     Dosage: CYCLE 2?DAY 01, OVER 30-90 MINUTE, CYCLE: 21 DAYS
     Route: 042

REACTIONS (10)
  - Atrial fibrillation [Unknown]
  - Cerebral ischaemia [Unknown]
  - Large intestine perforation [Unknown]
  - Disease progression [Fatal]
  - Abdominal infection [Unknown]
  - Small intestinal obstruction [Unknown]
  - White blood cell count decreased [Recovered/Resolved]
  - Cardio-respiratory arrest [Unknown]
  - Dehydration [Recovered/Resolved]
  - Vomiting [Recovered/Resolved]

NARRATIVE: CASE EVENT DATE: 20100426
